FAERS Safety Report 5316235-X (Version None)
Quarter: 2007Q2

REPORT INFORMATION
  Report Type: 
  Country: None (occurrence: None)
  Receive Date: 20070503
  Receipt Date: 20070423
  Transmission Date: 20071010
  Serious: Yes (Life-Threatening, Hospitalization)
  Sender: FDA-Public Use
  Company Number: HQWYE707227JUN05

PATIENT
  Sex: Female
  Weight: 58 kg

DRUGS (19)
  1. ENBREL [Suspect]
     Indication: RHEUMATOID ARTHRITIS
     Route: 058
     Dates: start: 20050603, end: 20050621
  2. ENBREL [Suspect]
     Route: 058
     Dates: start: 20050708, end: 20060201
  3. PREDNISOLONE [Concomitant]
     Indication: RHEUMATOID ARTHRITIS
     Dosage: DOSE AND FREQUENCY UNKNOWN
     Route: 048
     Dates: start: 19970101
  4. PREDNISOLONE [Concomitant]
     Route: 048
     Dates: start: 20040301
  5. PREDNISOLONE [Concomitant]
     Route: 048
  6. CARDENALIN [Concomitant]
     Indication: HYPERTENSION
     Route: 048
  7. CALSLOT [Concomitant]
     Indication: HYPERTENSION
     Route: 048
  8. BENET [Concomitant]
     Indication: OSTEOPOROSIS
     Route: 048
  9. ONE-ALPHA [Concomitant]
     Indication: OSTEOPOROSIS
     Route: 048
  10. PARIET [Concomitant]
     Indication: GASTRIC ULCER
     Route: 048
  11. LORCAM [Concomitant]
     Indication: RHEUMATOID ARTHRITIS
     Route: 048
  12. GASTROM [Concomitant]
     Dosage: DOSE AND FREQUENCY UNKNOWN
     Route: 048
  13. ASPARA K [Concomitant]
     Dosage: DOSE AND FREQUENCY UNKNOWN
     Route: 048
  14. LASIX [Concomitant]
     Dosage: DOSE AND FREQUENCY UNKNOWN
     Route: 048
  15. BUP-4 [Concomitant]
     Dosage: DOSE AND FREQUENCY UNKNOWN
     Route: 048
  16. CYTOTEC [Concomitant]
     Dosage: DOSE AND FREQUENCY UNKNOWN
     Route: 048
  17. BIOFERMIN [Concomitant]
     Dosage: DOSE AND FREQUENCY UNKNOWN
     Route: 048
  18. FERROMIA [Concomitant]
     Dosage: DOSE AND FREQUENCY UNKNOWN
     Route: 048
  19. ISCOTIN [Concomitant]
     Indication: ANTIBIOTIC PROPHYLAXIS
     Route: 048
     Dates: start: 20050603, end: 20050624

REACTIONS (3)
  - LEUKOENCEPHALOPATHY [None]
  - PETECHIAE [None]
  - PURPURA [None]
